FAERS Safety Report 15615373 (Version 8)
Quarter: 2019Q1

REPORT INFORMATION
  Report Type: Spontaneous
  Country: US (occurrence: US)
  Receive Date: 20181114
  Receipt Date: 20190307
  Transmission Date: 20190417
  Serious: Yes (Other)
  Sender: FDA-Public Use
  Company Number: US-PFIZER INC-2018463163

PATIENT
  Age: 55 Year
  Sex: Male
  Weight: 104 kg

DRUGS (32)
  1. LIPITOR [Suspect]
     Active Substance: ATORVASTATIN CALCIUM
     Indication: BLOOD CHOLESTEROL INCREASED
     Dosage: 20 MG, 1X/DAY
     Dates: start: 19970425
  2. KLONOPIN [Concomitant]
     Active Substance: CLONAZEPAM
     Indication: BIPOLAR I DISORDER
     Dosage: 1 MG, 1X/DAY (QHS)
     Route: 048
  3. LEXAPRO [Concomitant]
     Active Substance: ESCITALOPRAM OXALATE
     Dosage: 20 MG, 1X/DAY (QAM)
     Route: 048
  4. MYRBETRIQ [Concomitant]
     Active Substance: MIRABEGRON
     Dosage: 25 MG, 1X/DAY (QAM)
     Route: 048
  5. ABILIFY [Concomitant]
     Active Substance: ARIPIPRAZOLE
     Dosage: 15 MG, 1X/DAY (QHS)
     Route: 048
  6. LISINOPRIL. [Concomitant]
     Active Substance: LISINOPRIL
     Dosage: 10 MG, 1X/DAY (QAM)
     Route: 048
  7. ESCITALOPRAM [Concomitant]
     Active Substance: ESCITALOPRAM OXALATE
     Dosage: 20 MG, 1X/DAY (EVERY MORNING)
     Route: 048
  8. CYPROHEPTADINE HYDROCHLORIDE. [Concomitant]
     Active Substance: CYPROHEPTADINE HYDROCHLORIDE
     Indication: NIGHTMARE
     Dosage: 4 MG, 1X/DAY (QHS)
     Route: 048
  9. LIPITOR [Suspect]
     Active Substance: ATORVASTATIN CALCIUM
     Indication: BLOOD TRIGLYCERIDES INCREASED
     Dosage: 20 MG, DAILY
     Route: 048
     Dates: start: 1991, end: 201710
  10. LIPITOR [Suspect]
     Active Substance: ATORVASTATIN CALCIUM
     Indication: HYPERLIPIDAEMIA
     Dosage: 40 MG, 1X/DAY
     Route: 048
     Dates: start: 20041129, end: 20171018
  11. LIPITOR [Suspect]
     Active Substance: ATORVASTATIN CALCIUM
     Dosage: 10 MG, 3X/DAY
  12. CLONAZEPAM. [Concomitant]
     Active Substance: CLONAZEPAM
     Dosage: 1 MG, 1X/DAY (EVERY NIGHT AT BEDTIME)
     Route: 048
  13. XANAX [Concomitant]
     Active Substance: ALPRAZOLAM
     Indication: BIPOLAR I DISORDER
  14. PROVIGIL [Concomitant]
     Active Substance: MODAFINIL
     Dosage: 100 MG, 2X/DAY
     Route: 048
  15. LEXAPRO [Concomitant]
     Active Substance: ESCITALOPRAM OXALATE
     Indication: BIPOLAR I DISORDER
     Dosage: 10 MG, 1X/DAY
  16. OMEPRAZOLE. [Concomitant]
     Active Substance: OMEPRAZOLE
     Dosage: UNK
     Route: 048
  17. METOPROLOL TARTRATE. [Concomitant]
     Active Substance: METOPROLOL TARTRATE
     Dosage: 25 MG, 2X/DAY
     Route: 048
  18. PROZAC [Concomitant]
     Active Substance: FLUOXETINE HYDROCHLORIDE
     Dosage: 20 MG, 1X/DAY
  19. VIAGRA [Concomitant]
     Active Substance: SILDENAFIL CITRATE
     Dosage: 25 MG, AS NEEDED (PRN)
  20. ABILIFY [Concomitant]
     Active Substance: ARIPIPRAZOLE
     Dosage: 10 MG, 1X/DAY (QHS)
     Route: 048
  21. PROZAC [Concomitant]
     Active Substance: FLUOXETINE HYDROCHLORIDE
     Dosage: 40 MG, 1X/DAY (QAM)
  22. KLONOPIN [Concomitant]
     Active Substance: CLONAZEPAM
     Dosage: 1 MG, 1X/DAY (QHS)
     Route: 048
  23. AMBIEN [Concomitant]
     Active Substance: ZOLPIDEM TARTRATE
     Dosage: 15 MG, 1X/DAY (QHS)
     Route: 048
  24. AVANDIA [Concomitant]
     Active Substance: ROSIGLITAZONE MALEATE
     Dosage: UNK
  25. SEROQUEL [Concomitant]
     Active Substance: QUETIAPINE FUMARATE
     Dosage: 100 MG, 1X/DAY (QHS)
     Route: 048
  26. LIPITOR [Suspect]
     Active Substance: ATORVASTATIN CALCIUM
     Dosage: 20 MG, 3X/DAY
  27. ABILIFY [Concomitant]
     Active Substance: ARIPIPRAZOLE
     Indication: BIPOLAR I DISORDER
     Dosage: 20 MG, 1X/DAY (QAM)
     Route: 048
  28. XANAX [Concomitant]
     Active Substance: ALPRAZOLAM
     Indication: ANXIETY
     Dosage: 0.25 MG, AS NEEDED (PRN)
  29. AMBIEN [Concomitant]
     Active Substance: ZOLPIDEM TARTRATE
     Indication: BIPOLAR I DISORDER
     Dosage: 10 MG, 1X/DAY (QHS)
     Route: 048
  30. PROVIGIL [Concomitant]
     Active Substance: MODAFINIL
     Dosage: 200 MG, 1X/DAY (QAM)
     Route: 048
  31. NUVIGIL [Concomitant]
     Active Substance: ARMODAFINIL
     Indication: BIPOLAR I DISORDER
     Dosage: 150 MG, 1X/DAY (QHS)
     Route: 048
  32. BUSPAR [Concomitant]
     Active Substance: BUSPIRONE HYDROCHLORIDE
     Dosage: UNK

REACTIONS (1)
  - Type 2 diabetes mellitus [Not Recovered/Not Resolved]

NARRATIVE: CASE EVENT DATE: 2003
